FAERS Safety Report 9820072 (Version 1)
Quarter: 2013Q4

REPORT INFORMATION
  Report Type: Spontaneous
  Country: US (occurrence: None)
  Receive Date: 20131223
  Receipt Date: 20131223
  Transmission Date: 20140711
  Serious: Yes (Other)
  Sender: FDA-Public Use
  Company Number: 221216

PATIENT
  Sex: Male

DRUGS (2)
  1. PICATO [Suspect]
     Indication: ACTINIC KERATOSIS
     Dosage: (1 IN 1 D), TOPICAL
     Route: 061
     Dates: start: 20130403, end: 20130405
  2. CARAC (FLUOROURACIL) [Concomitant]

REACTIONS (1)
  - Application site reaction [None]
